FAERS Safety Report 7725797-4 (Version None)
Quarter: 2011Q3

REPORT INFORMATION
  Report Type: 
  Country: None (occurrence: None)
  Receive Date: 20110902
  Receipt Date: 20110826
  Transmission Date: 20111222
  Serious: Yes (Death, Hospitalization)
  Sender: FDA-Public Use
  Company Number: FR-BRISTOL-MYERS SQUIBB COMPANY-16007775

PATIENT
  Age: 73 Year
  Sex: Male
  Weight: 80 kg

DRUGS (3)
  1. AMIKACIN [Suspect]
  2. ACETAMINOPHEN [Suspect]
  3. CEFEPIME [Suspect]
     Indication: SEPSIS
     Route: 042
     Dates: start: 20101217, end: 20110106

REACTIONS (5)
  - EOSINOPHILIA [None]
  - PANCYTOPENIA [None]
  - DEATH [None]
  - DERMATITIS EXFOLIATIVE [None]
  - BONE MARROW DISORDER [None]
